FAERS Safety Report 6964461-6 (Version None)
Quarter: 2010Q3

REPORT INFORMATION
  Report Type: 
  Country: None (occurrence: None)
  Receive Date: 20100903
  Receipt Date: 20100825
  Transmission Date: 20110219
  Serious: Yes (Hospitalization, Other)
  Sender: FDA-Public Use
  Company Number: DE-PFIZER INC-2010084660

PATIENT
  Age: 55 Year
  Sex: Male
  Weight: 112 kg

DRUGS (26)
  1. CABASERIL [Suspect]
     Indication: RESTLESS LEGS SYNDROME
     Dosage: 4 MG, 1X/DAY
     Route: 048
     Dates: start: 20030101, end: 20060601
  2. CABASERIL [Suspect]
     Dosage: 3 MG, 1X/DAY
     Route: 048
     Dates: start: 20060601
  3. CABASERIL [Suspect]
     Dosage: 2 MG, 1X/DAY
     Route: 048
     Dates: end: 20090601
  4. CABASERIL [Suspect]
     Dosage: 1 MG, 1X/DAY
     Route: 048
     Dates: start: 20090601
  5. SIMVASTATIN [Suspect]
     Indication: HYPERLIPIDAEMIA
     Dosage: 20 MG, 2X/DAY
     Route: 048
  6. SIMVASTATIN [Suspect]
     Dosage: 20 MG, 1X/DAY
     Route: 048
  7. ASPIRIN [Concomitant]
     Dosage: 100 MG, 1X/DAY
     Route: 048
  8. ALLOPURINOL [Concomitant]
     Indication: HYPERURICAEMIA
     Dosage: 200 MG, 1X/DAY
     Route: 048
  9. ALLOPURINOL [Concomitant]
     Dosage: 100 MG, 1X/DAY
     Route: 048
     Dates: start: 20090601
  10. TOREM [Concomitant]
     Dosage: 10 MG, 2X/DAY
     Route: 048
  11. CAPTOPRIL [Concomitant]
     Dosage: 12.5 MG, 1X/DAY
     Route: 048
  12. DELIX PLUS [Concomitant]
     Dosage: 1 DF, 1X/DAY
     Route: 048
  13. PANTOPRAZOLE SODIUM [Concomitant]
     Dosage: 40 MG, 1X/DAY
     Route: 048
  14. FERRO SANOL [Concomitant]
     Dosage: 20 GTT, 1X/DAY
     Route: 048
  15. MADOPAR [Concomitant]
     Indication: RESTLESS LEGS SYNDROME
     Dosage: 50 MG, 3X/DAY
     Route: 048
     Dates: start: 20030731, end: 20030822
  16. NACOM - SLOW RELEASE [Concomitant]
     Indication: RESTLESS LEGS SYNDROME
     Dosage: 200 MG, UNK
     Route: 048
     Dates: start: 20030731, end: 20030822
  17. PRAMIPEXOLE [Concomitant]
     Dosage: UNK
     Route: 048
     Dates: end: 20030101
  18. LORMETAZEPAM [Concomitant]
     Route: 048
  19. LYRICA [Concomitant]
     Dosage: 150 MG, 2X/DAY
     Route: 048
  20. ZOPICLONE [Concomitant]
     Dosage: 7.5 MG, 1X/DAY (NIGHT)
     Route: 048
  21. TREVILOR - SLOW RELEASE [Concomitant]
     Dosage: 75 MG, 2X/DAY
     Route: 048
  22. SEROQUEL [Concomitant]
     Dosage: 200 MG, 1X/DAY
     Route: 048
  23. IBUPROFEN [Concomitant]
     Indication: PAIN
     Dosage: UNK
     Route: 048
  24. MORPHINE [Concomitant]
     Indication: PAIN
     Dosage: UNK
     Route: 048
     Dates: start: 20070101, end: 20080101
  25. OXYGESIC [Concomitant]
     Indication: PAIN
     Dosage: UNK
     Route: 048
     Dates: start: 20090401, end: 20090501
  26. TRAMAL [Concomitant]
     Indication: PAIN
     Dosage: UNK
     Route: 048
     Dates: start: 20090401, end: 20090501

REACTIONS (30)
  - ALCOHOLISM [None]
  - AORTIC VALVE INCOMPETENCE [None]
  - BACK PAIN [None]
  - CEREBROVASCULAR ACCIDENT [None]
  - CHEST PAIN [None]
  - COSTOCHONDRITIS [None]
  - DEPRESSION SUICIDAL [None]
  - DYSPNOEA [None]
  - FLUID RETENTION [None]
  - HEPATIC CIRRHOSIS [None]
  - HEPATIC STEATOSIS [None]
  - HEPATOSPLENOMEGALY [None]
  - HOMICIDAL IDEATION [None]
  - HYPERPHAGIA [None]
  - IMPRISONMENT [None]
  - IMPULSE-CONTROL DISORDER [None]
  - INTENTIONAL OVERDOSE [None]
  - LEFT VENTRICULAR HYPERTROPHY [None]
  - LOGORRHOEA [None]
  - MYOCARDITIS [None]
  - MYOSITIS [None]
  - OBESITY [None]
  - PATHOLOGICAL GAMBLING [None]
  - POLYSUBSTANCE DEPENDENCE [None]
  - PULMONARY HYPERTENSION [None]
  - RENAL CYST [None]
  - SELF INJURIOUS BEHAVIOUR [None]
  - SLEEP APNOEA SYNDROME [None]
  - SOMNOLENCE [None]
  - SUICIDE ATTEMPT [None]
